FAERS Safety Report 13967364 (Version 1)
Quarter: 2017Q3

REPORT INFORMATION
  Report Type: Spontaneous
  Country: US (occurrence: US)
  Receive Date: 20170914
  Receipt Date: 20170914
  Transmission Date: 20171128
  Serious: No
  Sender: FDA-Public Use
  Company Number: US-PFIZER INC-2017399075

PATIENT
  Age: 58 Year
  Sex: Female

DRUGS (1)
  1. XELJANZ XR [Suspect]
     Active Substance: TOFACITINIB CITRATE
     Dosage: 11 MG, UNK

REACTIONS (15)
  - Blood alkaline phosphatase increased [Unknown]
  - Red cell distribution width increased [Unknown]
  - Pain [Unknown]
  - Peripheral swelling [Unknown]
  - Oedema [Unknown]
  - Heart rate increased [Unknown]
  - Weight increased [Unknown]
  - Granulocyte count increased [Unknown]
  - Joint swelling [Unknown]
  - Hand deformity [Unknown]
  - Sleep disorder [Unknown]
  - Musculoskeletal stiffness [Unknown]
  - Arthralgia [Unknown]
  - Limb discomfort [Unknown]
  - Blood pressure increased [Unknown]
